FAERS Safety Report 8874311 (Version 2)
Quarter: 2016Q2

REPORT INFORMATION
  Report Type: Report from Study
  Country: SE (occurrence: SE)
  Receive Date: 20121023
  Receipt Date: 20160608
  Transmission Date: 20160815
  Serious: Yes (Other)
  Sender: FDA-Public Use
  Company Number: SE-CELGENEUS-150-21880-12010227

PATIENT

DRUGS (7)
  1. REVLIMID [Suspect]
     Active Substance: LENALIDOMIDE
     Indication: CHRONIC LYMPHOCYTIC LEUKAEMIA
     Dosage: 2.5-5-10MG OR 5-10-15MG
     Route: 048
  2. ALEMTUZUMAB [Concomitant]
     Active Substance: ALEMTUZUMAB
     Indication: CHRONIC LYMPHOCYTIC LEUKAEMIA
     Route: 058
  3. COTRIMOXAZOLE [Concomitant]
     Active Substance: SULFAMETHOXAZOLE\TRIMETHOPRIM
     Indication: INFECTION PROPHYLAXIS
     Route: 065
  4. VALACICLOVIR [Concomitant]
     Active Substance: VALACYCLOVIR HYDROCHLORIDE
     Indication: INFECTION PROPHYLAXIS
     Route: 065
  5. ALLOPURINOL. [Concomitant]
     Active Substance: ALLOPURINOL
     Indication: PROPHYLAXIS
     Route: 065
  6. G-CSF [Concomitant]
     Active Substance: GRANULOCYTE COLONY-STIMULATING FACTOR NOS
     Indication: PRODUCT USED FOR UNKNOWN INDICATION
     Route: 058
  7. PREDNISONE. [Concomitant]
     Active Substance: PREDNISONE
     Indication: PROPHYLAXIS
     Route: 065

REACTIONS (21)
  - Thrombosis [Unknown]
  - Febrile neutropenia [Unknown]
  - Neutropenia [Unknown]
  - Blood potassium increased [Unknown]
  - Pneumococcal infection [Unknown]
  - Back pain [Unknown]
  - Listeria sepsis [Unknown]
  - Dermatitis exfoliative [Unknown]
  - Thrombocytopenia [Unknown]
  - Abdominal pain upper [Unknown]
  - General physical health deterioration [Unknown]
  - Ventricular arrhythmia [Unknown]
  - Tumour flare [Unknown]
  - Anaemia [Unknown]
  - Pneumonia legionella [Unknown]
  - Neoplasm malignant [Unknown]
  - Hypotension [Unknown]
  - Chronic lymphocytic leukaemia [Unknown]
  - Influenza [Unknown]
  - Cytomegalovirus infection [Unknown]
  - Pneumonia [Unknown]
